FAERS Safety Report 4510414-7 (Version None)
Quarter: 2004Q4

REPORT INFORMATION
  Report Type: 
  Country: None (occurrence: None)
  Receive Date: 20041122
  Receipt Date: 20041109
  Transmission Date: 20050328
  Serious: Yes (Hospitalization)
  Sender: FDA-Public Use
  Company Number: 201186

PATIENT
  Age: 49 Year
  Sex: Male
  Weight: 90.7194 kg

DRUGS (1)
  1. AVONEX [Suspect]
     Indication: MULTIPLE SCLEROSIS
     Dosage: 30 MCG QW IM

REACTIONS (18)
  - ASTHENIA [None]
  - COGNITIVE DISORDER [None]
  - CONDITION AGGRAVATED [None]
  - DEPRESSION [None]
  - FALL [None]
  - GAIT DISTURBANCE [None]
  - HYPERTENSION [None]
  - IMPAIRED HEALING [None]
  - INCISION SITE COMPLICATION [None]
  - INFLUENZA LIKE ILLNESS [None]
  - INGUINAL HERNIA [None]
  - INJECTION SITE REACTION [None]
  - MULTIPLE SCLEROSIS [None]
  - MUSCLE CRAMP [None]
  - POSTOPERATIVE INFECTION [None]
  - STRESS SYMPTOMS [None]
  - SUICIDAL IDEATION [None]
  - WOUND DEHISCENCE [None]
